FAERS Safety Report 7943534-5 (Version None)
Quarter: 2011Q4

REPORT INFORMATION
  Report Type: 
  Country: None (occurrence: None)
  Receive Date: 20111128
  Receipt Date: 20111118
  Transmission Date: 20120403
  Serious: Yes (Other)
  Sender: FDA-Public Use
  Company Number: PHHY2011ES101666

PATIENT
  Age: 63 Year
  Sex: Female

DRUGS (1)
  1. METHOTREXATE [Suspect]
     Dosage: 20 MG, PER WEEK

REACTIONS (8)
  - OBLITERATIVE BRONCHIOLITIS [None]
  - INTERSTITIAL LUNG DISEASE [None]
  - PULMONARY FUNCTION TEST ABNORMAL [None]
  - RALES [None]
  - LUNG NEOPLASM MALIGNANT [None]
  - COUGH [None]
  - HYPERPLASIA [None]
  - PULMONARY FIBROSIS [None]
